FAERS Safety Report 4299033-8 (Version None)
Quarter: 2004Q1

REPORT INFORMATION
  Report Type: 
  Country: None (occurrence: None)
  Receive Date: 20040217
  Receipt Date: 20040209
  Transmission Date: 20041129
  Serious: No
  Sender: FDA-Public Use
  Company Number: 2004GB00346

PATIENT
  Age: 66 Year
  Weight: 79.5 kg

DRUGS (3)
  1. ATENOLOL [Suspect]
     Indication: HYPERTENSION
     Dosage: 50 MG QD
  2. BENDROFLUAZIDE [Suspect]
     Indication: HYPERTENSION
     Dosage: 2.5 MG QD
  3. DOXAZOSIN MESYLATE [Suspect]
     Indication: HYPERTENSION
     Dosage: 4 MG QD

REACTIONS (3)
  - HEPATIC CYST [None]
  - HEPATIC FIBROSIS [None]
  - INFLAMMATION [None]
